FAERS Safety Report 8838251 (Version 1)
Quarter: 2012Q4

REPORT INFORMATION
  Report Type: 
  Country: US (occurrence: US)
  Receive Date: 20121012
  Receipt Date: 20121012
  Transmission Date: 20130627
  Serious: No
  Sender: FDA-Public Use
  Company Number: US-PFIZER INC-2012254076

PATIENT
  Age: 37 Year
  Sex: Female
  Weight: 62 kg

DRUGS (4)
  1. CHANTIX [Suspect]
     Indication: SMOKING CESSATION THERAPY
     Dosage: UNK
     Route: 048
  2. SUBOXONE [Concomitant]
     Indication: DRUG WITHDRAWAL MAINTENANCE THERAPY
     Dosage: UNK
  3. SOMA [Concomitant]
     Indication: BACK DISORDER
     Dosage: UNK
  4. SOMA [Concomitant]
     Indication: MUSCULOSKELETAL DISCOMFORT

REACTIONS (2)
  - Headache [Unknown]
  - Mood altered [Unknown]
